FAERS Safety Report 6712646-6 (Version None)
Quarter: 2010Q2

REPORT INFORMATION
  Report Type: 
  Country: None (occurrence: None)
  Receive Date: 20100505
  Receipt Date: 20100505
  Transmission Date: 20101027
  Serious: Yes (Disabling, Other)
  Sender: FDA-Public Use
  Company Number: None

PATIENT
  Age: 9 Year
  Sex: Male

DRUGS (1)
  1. OXCARBAZEPINE [Suspect]
     Dosage: 150 MG P.O.
     Route: 048

REACTIONS (4)
  - AGGRESSION [None]
  - EDUCATIONAL PROBLEM [None]
  - IMPULSE-CONTROL DISORDER [None]
  - PRODUCT SUBSTITUTION ISSUE [None]
